FAERS Safety Report 16536433 (Version 1)
Quarter: 2019Q3

REPORT INFORMATION
  Report Type: Spontaneous
  Country: US (occurrence: US)
  Receive Date: 20190706
  Receipt Date: 20190706
  Transmission Date: 20191004
  Serious: Yes (Death, Life-Threatening, Hospitalization, Other)
  Sender: FDA-Public Use
  Company Number: US-AUROBINDO-AUR-APL-2019-037210

PATIENT

DRUGS (2)
  1. DEXAMETHASONE. [Suspect]
     Active Substance: DEXAMETHASONE
     Indication: INTRACRANIAL MASS
     Dosage: 24 MILLIGRAM, ONCE A DAY(IN DIVIDED DOSES)
     Route: 065
  2. DEXAMETHASONE. [Suspect]
     Active Substance: DEXAMETHASONE
     Indication: BRAIN OEDEMA
     Dosage: 10 MILLIGRAM
     Route: 065

REACTIONS (8)
  - Hyperferritinaemia [Fatal]
  - Encephalopathy [Fatal]
  - Condition aggravated [Fatal]
  - Coagulopathy [Fatal]
  - Multi-organ disorder [Fatal]
  - Herpes simplex [Fatal]
  - Cytopenia [Fatal]
  - Acute kidney injury [Fatal]
